FAERS Safety Report 9550168 (Version 3)
Quarter: 2013Q3

REPORT INFORMATION
  Report Type: Report from Study
  Country: CA (occurrence: CA)
  Receive Date: 20130924
  Receipt Date: 20130930
  Transmission Date: 20140515
  Serious: Yes (Hospitalization, Other)
  Sender: FDA-Public Use
  Company Number: PHHY2011CA108272

PATIENT
  Age: 75 Year
  Sex: Male

DRUGS (13)
  1. ACLASTA [Suspect]
     Indication: OSTEITIS DEFORMANS
     Dosage: 5 MG, UNK
     Route: 042
     Dates: start: 20110222
  2. ACLASTA [Suspect]
     Dosage: 5 MG, UNK
     Route: 042
     Dates: start: 20111208
  3. ACLASTA [Suspect]
     Dosage: 5 MG, UNK
     Route: 042
     Dates: start: 20121214
  4. SYNTHROID [Concomitant]
     Dosage: UNK UKN, UNK
  5. PRADAX [Concomitant]
     Dosage: 150 UKN, BID
     Route: 048
  6. XALATAN [Concomitant]
     Dosage: 50 MG, 2 DROPS TO BOTH EYES
  7. WARFARIN [Concomitant]
     Dosage: 4 MG, QD
     Route: 048
  8. TAMSULOSIN [Concomitant]
     Dosage: 0.4 MG, QD
  9. MULTIVITAMIN                       /00097801/ [Concomitant]
     Dosage: UNK UKN, UNK
  10. TYLENOL [Concomitant]
     Dosage: 1000 MG, QD
     Route: 048
  11. DOCUSATE [Concomitant]
     Dosage: 200 MG, BID
     Route: 048
  12. DALTEPARIN [Concomitant]
     Dosage: 5000 U, BID
     Route: 058
  13. VITAMIN D [Concomitant]
     Dosage: UNK UKN, UNK

REACTIONS (15)
  - Osteomyelitis [Recovering/Resolving]
  - Haematoma infection [Recovering/Resolving]
  - Erythema [Recovering/Resolving]
  - Pain [Recovering/Resolving]
  - Staphylococcal infection [Recovering/Resolving]
  - Arthritis bacterial [Recovering/Resolving]
  - Skin ulcer [Recovering/Resolving]
  - Abscess limb [Recovering/Resolving]
  - Purulence [Recovering/Resolving]
  - Excessive granulation tissue [Recovering/Resolving]
  - Cellulitis [Recovering/Resolving]
  - Tenderness [Recovering/Resolving]
  - Feeling hot [Recovering/Resolving]
  - Deep vein thrombosis [Recovering/Resolving]
  - Inappropriate schedule of drug administration [Unknown]
